FAERS Safety Report 6467292-9 (Version None)
Quarter: 2009Q4

REPORT INFORMATION
  Report Type: 
  Country: None (occurrence: None)
  Receive Date: 20091202
  Receipt Date: 20091124
  Transmission Date: 20100525
  Serious: Yes (Death, Other)
  Sender: FDA-Public Use
  Company Number: AU-BRISTOL-MYERS SQUIBB COMPANY-14642813

PATIENT
  Age: 72 Year
  Sex: Male

DRUGS (6)
  1. ERBITUX [Suspect]
     Indication: HEAD AND NECK CANCER
  2. RADIATION THERAPY [Suspect]
     Indication: HEAD AND NECK CANCER
  3. PLAVIX [Concomitant]
  4. CADUET [Concomitant]
  5. CARVEDILOL [Concomitant]
  6. NEXIUM [Concomitant]

REACTIONS (4)
  - ARTERIAL HAEMORRHAGE [None]
  - OEDEMA MOUTH [None]
  - ORAL PAIN [None]
  - STOMATITIS [None]
